FAERS Safety Report 25090619 (Version 1)
Quarter: 2025Q1

REPORT INFORMATION
  Report Type: Spontaneous
  Country: US (occurrence: None)
  Receive Date: 20250318
  Receipt Date: 20250318
  Transmission Date: 20250408
  Serious: Yes (Other)
  Sender: FDA-CTU
  Company Number: None

PATIENT
  Age: 16 Year
  Sex: Male
  Weight: 88.2 kg

DRUGS (1)
  1. DUPIXENT [Suspect]
     Active Substance: DUPILUMAB
     Indication: Dermatitis atopic
     Route: 058
     Dates: start: 20250306

REACTIONS (3)
  - Skin burning sensation [None]
  - Pain [None]
  - Educational problem [None]

NARRATIVE: CASE EVENT DATE: 20250318
